FAERS Safety Report 6165339-0 (Version None)
Quarter: 2009Q2

REPORT INFORMATION
  Report Type: 
  Country: None (occurrence: None)
  Receive Date: 20090423
  Receipt Date: 20090414
  Transmission Date: 20091009
  Serious: Yes (Other)
  Sender: FDA-Public Use
  Company Number: US-WYE-H08952609

PATIENT
  Age: 32 Year
  Sex: Male

DRUGS (3)
  1. BENEFIX [Suspect]
     Indication: FACTOR IX DEFICIENCY
     Dosage: UNKNOWN
     Route: 042
     Dates: start: 20080101, end: 20080101
  2. BENEFIX [Suspect]
     Dosage: UNKNOWN
     Route: 042
     Dates: start: 20080101, end: 20080101
  3. BENEFIX [Suspect]
     Dosage: UNKNOWN
     Route: 042

REACTIONS (1)
  - MIGRAINE WITH AURA [None]
